FAERS Safety Report 15201118 (Version 1)
Quarter: 2018Q3

REPORT INFORMATION
  Report Type: Spontaneous
  Country: US (occurrence: US)
  Receive Date: 20180726
  Receipt Date: 20180726
  Transmission Date: 20181010
  Serious: No
  Sender: FDA-Public Use
  Company Number: US-PFIZER INC-2018300013

PATIENT
  Sex: Male

DRUGS (2)
  1. LYRICA [Suspect]
     Active Substance: PREGABALIN
     Indication: EXOSTOSIS
  2. LYRICA [Suspect]
     Active Substance: PREGABALIN
     Indication: MULTIPLE SCLEROSIS
     Dosage: 50 MG TWICE A DAY, 100 MG IN ONE CAPSULE ONE TIME A BED TIME
     Dates: start: 2013

REACTIONS (3)
  - Somnolence [Unknown]
  - Dizziness [Unknown]
  - Product use in unapproved indication [Unknown]
